FAERS Safety Report 8407460 (Version 6)
Quarter: 2013Q1

REPORT INFORMATION
  Report Type: Report from Study
  Country: TR (occurrence: TR)
  Receive Date: 20120215
  Receipt Date: 20130319
  Transmission Date: 20140127
  Serious: Yes (Hospitalization, Other)
  Sender: FDA-Public Use
  Company Number: TR-PFIZER INC-2012036467

PATIENT
  Age: 16 Month
  Sex: Male
  Weight: 9.2 kg

DRUGS (2)
  1. REFACTO AF [Suspect]
     Indication: FACTOR VIII DEFICIENCY
     Dosage: 1?250 IU, ON DEMAND
     Route: 042
     Dates: start: 20110317, end: 20120102
  2. REFACTO AF [Suspect]
     Dosage: 1000 IU (2X500 IU), WEEKLY
     Route: 042
     Dates: start: 20120104, end: 20120119

REACTIONS (3)
  - Factor VIII inhibition [Recovered/Resolved]
  - Tongue haemorrhage [Recovered/Resolved]
  - Soft tissue disorder [Recovered/Resolved with Sequelae]
